FAERS Safety Report 9102369 (Version 1)
Quarter: 2013Q1

REPORT INFORMATION
  Report Type: Spontaneous
  Country: US (occurrence: US)
  Receive Date: 20130219
  Receipt Date: 20130219
  Transmission Date: 20140127
  Serious: No
  Sender: FDA-Public Use
  Company Number: US-JNJFOC-20130203523

PATIENT
  Sex: Female

DRUGS (2)
  1. FENTANYL TRANSDERMAL SYSTEM [Suspect]
     Indication: RIB FRACTURE
     Dosage: NDC 0781-7242-55
     Route: 062
     Dates: start: 201301
  2. FENTANYL TRANSDERMAL SYSTEM [Suspect]
     Indication: PNEUMOTHORAX
     Dosage: NDC 0781-7242-55
     Route: 062
     Dates: start: 201301

REACTIONS (5)
  - Product quality issue [Not Recovered/Not Resolved]
  - Wrong technique in drug usage process [Not Recovered/Not Resolved]
  - Product quality issue [Not Recovered/Not Resolved]
  - Product quality issue [Not Recovered/Not Resolved]
  - Product quality issue [Not Recovered/Not Resolved]
